FAERS Safety Report 9189278 (Version 1)
Quarter: 2013Q1

REPORT INFORMATION
  Report Type: Spontaneous
  Country: US (occurrence: None)
  Receive Date: 20130321
  Receipt Date: 20130321
  Transmission Date: 20140127
  Serious: No
  Sender: FDA-Public Use
  Company Number: None

PATIENT
  Age: 76 Year
  Sex: Male
  Weight: 73.5 kg

DRUGS (2)
  1. RIVAROXABAN [Suspect]
     Indication: DEEP VEIN THROMBOSIS
     Dosage: 20 MG EVERY DAY PO
     Route: 048
     Dates: start: 20130129, end: 20130314
  2. RIVAROXABAN [Suspect]
     Indication: PULMONARY EMBOLISM
     Dosage: 20 MG EVERY DAY PO
     Route: 048
     Dates: start: 20130129, end: 20130314

REACTIONS (2)
  - Confusional state [None]
  - Dizziness [None]
